FAERS Safety Report 5534646-4 (Version None)
Quarter: 2007Q4

REPORT INFORMATION
  Report Type: 
  Country: None (occurrence: None)
  Receive Date: 20071205
  Receipt Date: 20071130
  Transmission Date: 20080405
  Serious: Yes (Other)
  Sender: FDA-Public Use
  Company Number: BE-JNJFOC-20071200246

PATIENT
  Sex: Female

DRUGS (7)
  1. IMONOGAS [Suspect]
     Indication: DRUG USE FOR UNKNOWN INDICATION
     Dosage: UNKNOWN
     Route: 048
  2. AKTON [Concomitant]
  3. BETASERC [Concomitant]
  4. DAKAR [Concomitant]
  5. EFFEXOR [Concomitant]
  6. FEMOSTON CONTI [Concomitant]
  7. IBEXONE [Concomitant]

REACTIONS (1)
  - DIARRHOEA [None]
